FAERS Safety Report 18214859 (Version 5)
Quarter: 2021Q1

REPORT INFORMATION
  Report Type: Spontaneous
  Country: US (occurrence: US)
  Receive Date: 20200831
  Receipt Date: 20210324
  Transmission Date: 20210419
  Serious: Yes (Other)
  Sender: FDA-Public Use
  Company Number: US-PFIZER INC-2020293741

PATIENT
  Age: 40 Year
  Sex: Female
  Weight: 75 kg

DRUGS (6)
  1. XELJANZ [Suspect]
     Active Substance: TOFACITINIB CITRATE
     Indication: BACK PAIN
     Dosage: 5 MG
     Dates: start: 20190601
  2. XELJANZ [Suspect]
     Active Substance: TOFACITINIB CITRATE
     Dosage: 5 MG, 1X/DAY [STARTED BACK UP ABOUT A WEEK AGO WITH ONCE DAILY DOSING]
     Dates: start: 202008, end: 2020
  3. XELJANZ [Suspect]
     Active Substance: TOFACITINIB CITRATE
     Dosage: 5 MG
     Dates: start: 20200724, end: 2020
  4. XELJANZ [Suspect]
     Active Substance: TOFACITINIB CITRATE
     Dosage: 5 MG, 2X/DAY
     Dates: start: 2020
  5. XELJANZ [Suspect]
     Active Substance: TOFACITINIB CITRATE
     Dosage: UNK
     Dates: start: 20191219
  6. XELJANZ [Suspect]
     Active Substance: TOFACITINIB CITRATE
     Dosage: 5 MG
     Dates: start: 20200721, end: 202007

REACTIONS (13)
  - Kidney infection [Unknown]
  - Ocular hyperaemia [Unknown]
  - Infection [Unknown]
  - Arthritis [Not Recovered/Not Resolved]
  - Oropharyngeal pain [Unknown]
  - Off label use [Unknown]
  - Pain [Unknown]
  - Product dose omission issue [Unknown]
  - Arthralgia [Unknown]
  - Intentional product misuse [Unknown]
  - Back pain [Unknown]
  - Pharyngeal disorder [Unknown]
  - Eye inflammation [Unknown]

NARRATIVE: CASE EVENT DATE: 20190601
